FAERS Safety Report 8508997-5 (Version None)
Quarter: 2012Q3

REPORT INFORMATION
  Report Type: 
  Country: None (occurrence: None)
  Receive Date: 20120713
  Receipt Date: 20120706
  Transmission Date: 20120928
  Serious: Yes (Other)
  Sender: FDA-Public Use
  Company Number: GB-PFIZER INC-2012162103

PATIENT
  Age: 68 Year
  Sex: Male

DRUGS (9)
  1. DICLOFENAC [Concomitant]
     Indication: PAIN
     Dosage: 50 MG, 3X/DAY
     Route: 048
     Dates: start: 20120501
  2. MORPHINE SULFATE [Concomitant]
     Indication: PAIN
     Dosage: 40 MG, 2X/DAY
     Route: 048
     Dates: start: 20120501
  3. DEXAMETHASONE [Concomitant]
     Indication: METASTASES TO CENTRAL NERVOUS SYSTEM
     Dosage: 12 MG, UNK
     Route: 048
     Dates: start: 20120501
  4. ONDANSETRON HYDROCHLORIDE [Suspect]
     Indication: NAUSEA
     Dosage: 4 MG, UNK
     Route: 048
     Dates: start: 20120618, end: 20120618
  5. OMEPRAZOLE [Concomitant]
     Indication: GASTRIC DISORDER
     Dosage: 20 MG, 1X/DAY
     Route: 048
     Dates: start: 20120501
  6. CYCLIZINE [Concomitant]
     Indication: NAUSEA
     Dosage: 50 MG, 3X/DAY
     Route: 048
     Dates: start: 20120501
  7. MOVIPREP [Concomitant]
     Indication: CONSTIPATION
     Dosage: 1 DF, 2X/DAY
     Route: 048
     Dates: start: 20120501
  8. SENNA-MINT WAF [Concomitant]
     Indication: CONSTIPATION
     Dosage: 1 DF, 2X/DAY
     Route: 048
     Dates: start: 20120501
  9. ORAMORPH SR [Concomitant]
     Indication: PAIN
     Dosage: 20 MG, UNK
     Route: 048
     Dates: start: 20120501

REACTIONS (4)
  - AGITATION [None]
  - MUSCLE SPASMS [None]
  - TREMOR [None]
  - RESTLESSNESS [None]
